FAERS Safety Report 5484014-9 (Version None)
Quarter: 2007Q4

REPORT INFORMATION
  Report Type: 
  Country: None (occurrence: None)
  Receive Date: 20071012
  Receipt Date: 20071001
  Transmission Date: 20080405
  Serious: Yes (Other)
  Sender: FDA-Public Use
  Company Number: GB-ROCHE-522745

PATIENT
  Age: 54 Year
  Sex: Female
  Weight: 74.5 kg

DRUGS (15)
  1. ORLISTAT [Suspect]
     Indication: OBESITY
     Route: 048
     Dates: start: 20070302
  2. LISINOPRIL [Concomitant]
     Dosage: DATE STARTED REPORTED AS 15 YEARS +
     Route: 048
  3. FRUSEMIDE [Concomitant]
     Dosage: DATE STARTED REPORTED AS 15 YEARS + DRUG REPORTED AS FRUSAMIDE
     Route: 048
  4. SPIROLACTONE [Concomitant]
     Dosage: DATE STARTED REPORTED AS 15 YEARS +
     Route: 048
  5. LANSOPRAZOLE [Concomitant]
     Indication: DRUG USE FOR UNKNOWN INDICATION
     Route: 048
  6. ATENOLOL [Concomitant]
     Route: 048
  7. TRAZODONE HYDROCHLORIDE [Concomitant]
     Indication: DRUG USE FOR UNKNOWN INDICATION
     Dosage: REPORTED AS 100 MG 4X EVENING
     Route: 048
  8. CO CODAMOL [Concomitant]
     Indication: DRUG USE FOR UNKNOWN INDICATION
     Dosage: REPORTED AS 2X30 MG 4 TIMES DAILY
     Route: 048
  9. FLUOXETINE [Concomitant]
     Indication: DRUG USE FOR UNKNOWN INDICATION
     Route: 048
  10. HYDROCODIN [Concomitant]
     Indication: DRUG USE FOR UNKNOWN INDICATION
     Dosage: DRUG REPORTED AS HYDROCODINE
     Route: 048
  11. IBUPROFEN [Concomitant]
     Indication: ARTHRITIS
     Dosage: DRUG REPORTED AS IBUPROFEN GEL
  12. TEMAZEPAM [Concomitant]
     Indication: DRUG USE FOR UNKNOWN INDICATION
     Route: 048
  13. LACRILUBE [Concomitant]
  14. 1 CONCOMITANT DRUG [Concomitant]
     Dosage: DRUG REPORTED AS HYPERMELOSE
  15. HYDROCORTISONE [Concomitant]
     Dosage: DATE STARTED REPORTED AS PAST FORTNIGHT, DATE STOPPED REPORTED AS LAST WEEK
     Route: 048

REACTIONS (1)
  - NEOPLASM MALIGNANT [None]
